FAERS Safety Report 4525537-6 (Version None)
Quarter: 2004Q4

REPORT INFORMATION
  Report Type: 
  Country: None (occurrence: None)
  Receive Date: 20041116
  Receipt Date: 20040816
  Transmission Date: 20050328
  Serious: No
  Sender: FDA-Public Use
  Company Number: S04-USA-05825-02

PATIENT
  Age: 84 Year
  Sex: Female

DRUGS (4)
  1. NAMENDA [Suspect]
     Indication: DEMENTIA ALZHEIMER'S TYPE
     Dates: start: 20040301, end: 20040720
  2. ARICEPT [Concomitant]
  3. ZOLOFT [Concomitant]
  4. DEPAKOTE [Concomitant]

REACTIONS (1)
  - AGITATION [None]
